FAERS Safety Report 8970619 (Version 1)
Quarter: 2012Q4

REPORT INFORMATION
  Report Type: 
  Country: US (occurrence: US)
  Receive Date: 20121218
  Receipt Date: 20121218
  Transmission Date: 20130627
  Serious: Yes (Other)
  Sender: FDA-Public Use
  Company Number: US-BRISTOL-MYERS SQUIBB COMPANY-17069667

PATIENT
  Age: 64 Year
  Sex: Female
  Weight: 95.24 kg

DRUGS (3)
  1. ABILIFY TABS [Suspect]
     Indication: DEPRESSION
  2. PREDNISONE [Concomitant]
  3. METFORMIN HCL [Concomitant]

REACTIONS (6)
  - Diabetes mellitus [Unknown]
  - Tension headache [Unknown]
  - Eye disorder [Unknown]
  - Fatigue [Recovering/Resolving]
  - Tremor [Unknown]
  - Wrong technique in drug usage process [Unknown]
